FAERS Safety Report 8265339-0 (Version None)
Quarter: 2012Q2

REPORT INFORMATION
  Report Type: 
  Country: None (occurrence: None)
  Receive Date: 20120406
  Receipt Date: 20120326
  Transmission Date: 20120825
  Serious: Yes (Other)
  Sender: FDA-Public Use
  Company Number: CA-ROCHE-1054650

PATIENT
  Sex: Male

DRUGS (5)
  1. XOLAIR [Suspect]
     Indication: ASTHMA
     Route: 058
     Dates: start: 20071113
  2. ALVESCO [Concomitant]
     Dates: start: 20080101
  3. LIPIDIL [Concomitant]
     Dates: start: 20100101
  4. SYMBICORT [Concomitant]
     Dates: start: 20040101
  5. VENTOLIN [Concomitant]
     Dates: start: 19870101

REACTIONS (2)
  - CHEST DISCOMFORT [None]
  - ISCHAEMIA [None]
